FAERS Safety Report 20365575 (Version 2)
Quarter: 2022Q1

REPORT INFORMATION
  Report Type: Report from Study
  Country: BR (occurrence: BR)
  Receive Date: 20220122
  Receipt Date: 20220226
  Transmission Date: 20220423
  Serious: Yes (Other)
  Sender: FDA-Public Use
  Company Number: BR-NOVARTISPH-NVSC2022BR009490

PATIENT
  Sex: Female

DRUGS (7)
  1. LETROZOLE [Suspect]
     Active Substance: LETROZOLE
     Indication: Product used for unknown indication
     Dosage: UNK, (AROUND 2016)
     Route: 065
     Dates: start: 2016
  2. FASLODEX [Concomitant]
     Active Substance: FULVESTRANT
     Indication: Product used for unknown indication
     Dosage: UNK
     Route: 065
     Dates: start: 2020
  3. EXEMESTANE [Concomitant]
     Active Substance: EXEMESTANE
     Indication: Product used for unknown indication
     Dosage: UNK, (AROUND 2016)
     Route: 065
  4. VAGIDRAT [Concomitant]
     Indication: Product used for unknown indication
     Dosage: UNK
     Route: 065
  5. ZOMETA [Concomitant]
     Active Substance: ZOLEDRONIC ACID
     Indication: Product used for unknown indication
     Dosage: UNK
     Route: 065
  6. ANASTROZOLE [Concomitant]
     Active Substance: ANASTROZOLE
     Indication: Oestrogenic effect
     Dosage: UNK
     Route: 065
     Dates: start: 2016
  7. TAMOXIFEN [Concomitant]
     Active Substance: TAMOXIFEN
     Indication: Product used for unknown indication
     Dosage: UNK
     Route: 065

REACTIONS (14)
  - Bone cancer [Unknown]
  - Neoplasm malignant [Unknown]
  - Liver injury [Unknown]
  - Skin atrophy [Unknown]
  - Nasal dryness [Not Recovered/Not Resolved]
  - Gait inability [Unknown]
  - Bursitis [Unknown]
  - Haemangioma [Unknown]
  - Carpal tunnel syndrome [Unknown]
  - Tumour marker abnormal [Recovering/Resolving]
  - Vulvovaginal dryness [Unknown]
  - Dry skin [Unknown]
  - Pain [Unknown]
  - Drug ineffective [Unknown]

NARRATIVE: CASE EVENT DATE: 20160101
